FAERS Safety Report 11106183 (Version 1)
Quarter: 2015Q2

REPORT INFORMATION
  Report Type: Report from Study
  Country: US (occurrence: US)
  Receive Date: 20150512
  Receipt Date: 20150512
  Transmission Date: 20150821
  Serious: Yes (Hospitalization, Other)
  Sender: FDA-Public Use
  Company Number: US-JNJFOC-20150422174

PATIENT
  Age: 74 Year
  Sex: Male
  Weight: 104.33 kg

DRUGS (2)
  1. STELARA [Suspect]
     Active Substance: USTEKINUMAB
     Indication: PSORIASIS
     Route: 058
  2. VALIUM [Suspect]
     Active Substance: DIAZEPAM
     Indication: PRODUCT USED FOR UNKNOWN INDICATION
     Route: 065

REACTIONS (14)
  - Dermatitis [Recovered/Resolved]
  - Nausea [Not Recovered/Not Resolved]
  - Malaise [Recovered/Resolved]
  - Anxiety [Unknown]
  - Accidental overdose [Recovered/Resolved]
  - Cataract [Not Recovered/Not Resolved]
  - Intestinal obstruction [Recovered/Resolved]
  - Eye disorder [Not Recovered/Not Resolved]
  - Apparent death [Recovered/Resolved]
  - Weight increased [Not Recovered/Not Resolved]
  - Eating disorder [Not Recovered/Not Resolved]
  - Psoriasis [Not Recovered/Not Resolved]
  - Blood iron decreased [Recovered/Resolved]
  - Infection [Recovered/Resolved]

NARRATIVE: CASE EVENT DATE: 2010
